FAERS Safety Report 17002247 (Version 5)
Quarter: 2019Q4

REPORT INFORMATION
  Report Type: Spontaneous
  Country: DE (occurrence: DE)
  Receive Date: 20191106
  Receipt Date: 20191216
  Transmission Date: 20200122
  Serious: Yes (Death, Hospitalization, Other)
  Sender: FDA-Public Use
  Company Number: DE-BRISTOL-MYERS SQUIBB COMPANY-BMS-2019-105832

PATIENT
  Age: 69 Year
  Sex: Female
  Weight: 75 kg

DRUGS (1)
  1. OPDIVO [Suspect]
     Active Substance: NIVOLUMAB
     Indication: MALIGNANT MELANOMA
     Dosage: UNK
     Route: 065
     Dates: start: 2018

REACTIONS (14)
  - Multiple organ dysfunction syndrome [Fatal]
  - Urinary retention [Unknown]
  - Vomiting [Unknown]
  - Erythema [Unknown]
  - General physical health deterioration [Unknown]
  - Hepatic failure [Fatal]
  - Pancreatic enzymes increased [Unknown]
  - Loss of consciousness [Unknown]
  - Blood lactic acid increased [Unknown]
  - Drug-induced liver injury [Unknown]
  - Retrograde amnesia [Unknown]
  - Immune-mediated hepatitis [Fatal]
  - Urticaria [Unknown]
  - Hypotension [Unknown]

NARRATIVE: CASE EVENT DATE: 20191002
